FAERS Safety Report 5923816-9 (Version None)
Quarter: 2008Q4

REPORT INFORMATION
  Report Type: 
  Country: None (occurrence: None)
  Receive Date: 20081020
  Receipt Date: 20081008
  Transmission Date: 20090506
  Serious: Yes (Other)
  Sender: FDA-Public Use
  Company Number: US-TYCO HEALTHCARE/MALLINCKRODT-T200801688

PATIENT

DRUGS (5)
  1. OPTIMARK [Suspect]
     Dosage: UNK, SINGLE
     Route: 042
  2. OMNISCAN [Suspect]
  3. MAGNEVIST [Suspect]
  4. MULTIHANCE [Suspect]
  5. PROHANCE [Suspect]

REACTIONS (1)
  - NEPHROGENIC SYSTEMIC FIBROSIS [None]
